FAERS Safety Report 5930761-1 (Version None)
Quarter: 2008Q4

REPORT INFORMATION
  Report Type: 
  Country: None (occurrence: None)
  Receive Date: 20081021
  Receipt Date: 20081006
  Transmission Date: 20090506
  Serious: Yes (Hospitalization)
  Sender: FDA-Public Use
  Company Number: DSA_32494_2008

PATIENT
  Age: 36 Year
  Sex: Female

DRUGS (5)
  1. LORAZEPAM [Suspect]
     Dosage: (ORAL)
     Route: 048
     Dates: start: 20081003, end: 20081003
  2. OPIPRAMOL (OPIPRAMOL) [Suspect]
     Dosage: (1000 MG 1X, ORAL)
     Route: 048
     Dates: start: 20081003, end: 20081003
  3. WICK MEDINAIT /00593201/ (WICK MEDINAIT - ANETHOLE/DEXTROMETHORPHAN HY [Suspect]
     Dosage: (1 BOTTLE ORAL)
     Route: 048
     Dates: start: 20081003, end: 20081003
  4. ZIPRASIDONE HCL [Suspect]
     Dosage: (6000 MG 1X, ORAL)
     Route: 048
     Dates: start: 20081003, end: 20081003
  5. ZOPICLONE (ZOPICLONE) [Suspect]
     Dosage: (ORAL)
     Route: 048
     Dates: start: 20081003, end: 20081003

REACTIONS (6)
  - DYSARTHRIA [None]
  - FATIGUE [None]
  - MULTIPLE DRUG OVERDOSE INTENTIONAL [None]
  - PALLOR [None]
  - RESTLESSNESS [None]
  - SUICIDE ATTEMPT [None]
